FAERS Safety Report 9889728 (Version 2)
Quarter: 2014Q1

REPORT INFORMATION
  Report Type: Spontaneous
  Country: JP (occurrence: JP)
  Receive Date: 20140211
  Receipt Date: 20140211
  Transmission Date: 20141002
  Serious: Yes (Hospitalization)
  Sender: FDA-Public Use
  Company Number: JP-PFIZER INC-2014004681

PATIENT
  Age: 89 Year
  Sex: Female

DRUGS (5)
  1. ZITHROMAC [Suspect]
     Indication: COUGH
     Dosage: 500 MG, DAILY
     Route: 048
     Dates: start: 20131219, end: 20131221
  2. WARFARIN [Suspect]
  3. PREDONINE [Concomitant]
     Route: 048
  4. TAKEPRON [Concomitant]
     Route: 048
  5. THYRADIN [Concomitant]

REACTIONS (4)
  - Drug ineffective [Unknown]
  - Dysphagia [Recovered/Resolved]
  - Feeling abnormal [Recovered/Resolved]
  - Haemoptysis [Unknown]
